FAERS Safety Report 8928885 (Version 1)
Quarter: 2012Q4

REPORT INFORMATION
  Report Type: 
  Country: GB (occurrence: GB)
  Receive Date: 20121128
  Receipt Date: 20121128
  Transmission Date: 20130627
  Serious: Yes (Hospitalization)
  Sender: FDA-Public Use
  Company Number: GB-AMGEN-GBRSP2012076030

PATIENT
  Age: 75 Year
  Sex: Male

DRUGS (12)
  1. PROLIA [Suspect]
     Indication: OSTEOPOROSIS
  2. AZITHROMYCIN [Concomitant]
  3. CALCICHEW D3 [Concomitant]
  4. CARBOCISTEINE [Concomitant]
  5. FLUTICASONE [Concomitant]
  6. FOLIC ACID [Concomitant]
  7. IPRATROPIUM BROMIDE [Concomitant]
  8. LANSOPRAZOLE [Concomitant]
  9. LEVOTHYROXINE [Concomitant]
  10. SALBUTAMOL [Concomitant]
  11. SALMETEROL [Concomitant]
  12. UNIPHYLLIN [Concomitant]

REACTIONS (6)
  - Constipation [Recovering/Resolving]
  - Hyperhidrosis [Recovering/Resolving]
  - Dysuria [Recovering/Resolving]
  - Urinary hesitation [Recovering/Resolving]
  - Decreased appetite [Recovering/Resolving]
  - Nausea [Recovering/Resolving]
